FAERS Safety Report 24746882 (Version 1)
Quarter: 2024Q4

REPORT INFORMATION
  Report Type: Report from Study
  Country: US (occurrence: US)
  Receive Date: 20241218
  Receipt Date: 20241218
  Transmission Date: 20250115
  Serious: Yes (Hospitalization)
  Sender: JAZZ
  Company Number: US-JAZZ PHARMACEUTICALS-2024-US-024060

PATIENT
  Sex: Male
  Weight: 60 kg

DRUGS (1)
  1. EPIDIOLEX [Suspect]
     Active Substance: CANNABIDIOL
     Indication: Product used for unknown indication
     Dosage: 3 ML IN THE MORNING AND 4 ML IN THE EVENING (DOSE INCREASE)
     Route: 048

REACTIONS (1)
  - Hospitalisation [Unknown]
